FAERS Safety Report 7519149-X (Version None)
Quarter: 2011Q2

REPORT INFORMATION
  Report Type: 
  Country: None (occurrence: None)
  Receive Date: 20110602
  Receipt Date: 20110518
  Transmission Date: 20111010
  Serious: Yes (Hospitalization)
  Sender: FDA-Public Use
  Company Number: PHHY2011HU40505

PATIENT
  Age: 85 Year
  Sex: Male

DRUGS (4)
  1. CALCIUM CARBONATE [Concomitant]
  2. NIACIN [Concomitant]
  3. VITAMIN B [Concomitant]
  4. ZOLEDRONIC ACID [Suspect]
     Indication: OSTEOPOROSIS
     Dosage: 5 MG/ YEAR
     Route: 042
     Dates: start: 20110429

REACTIONS (12)
  - DIPLOPIA [None]
  - ERYTHEMA OF EYELID [None]
  - EXOPHTHALMOS [None]
  - EYE MOVEMENT DISORDER [None]
  - EYELID OEDEMA [None]
  - RED CELL DISTRIBUTION WIDTH INCREASED [None]
  - C-REACTIVE PROTEIN INCREASED [None]
  - EYE PAIN [None]
  - HEADACHE [None]
  - PUPILLARY DISORDER [None]
  - EYE INFLAMMATION [None]
  - MONOCYTE COUNT INCREASED [None]
